FAERS Safety Report 8462231-3 (Version None)
Quarter: 2012Q2

REPORT INFORMATION
  Report Type: 
  Country: None (occurrence: None)
  Receive Date: 20120625
  Receipt Date: 20120621
  Transmission Date: 20120825
  Serious: Yes (Other)
  Sender: FDA-Public Use
  Company Number: PHHY2010CA23886

PATIENT
  Sex: Female

DRUGS (3)
  1. SANDOSTATIN [Suspect]
     Indication: ANAEMIA
     Dosage: 100 UG, TID
     Route: 058
     Dates: start: 20100309
  2. SANDOSTATIN [Suspect]
     Dosage: 20 MG, ONCE A MONTH
     Route: 030
     Dates: start: 20100505
  3. SANDOSTATIN LAR [Suspect]
     Indication: ANAEMIA
     Dosage: 20 MG, QMO
     Route: 030
     Dates: start: 20100505

REACTIONS (4)
  - BLOOD PRESSURE SYSTOLIC INCREASED [None]
  - BLOOD GLUCOSE FLUCTUATION [None]
  - VARICOSE VEIN [None]
  - BLOOD GLUCOSE INCREASED [None]
